FAERS Safety Report 4949243-9 (Version None)
Quarter: 2006Q1

REPORT INFORMATION
  Report Type: 
  Country: None (occurrence: None)
  Receive Date: 20060321
  Receipt Date: 20060313
  Transmission Date: 20060701
  Serious: Yes (Hospitalization)
  Sender: FDA-Public Use
  Company Number: US-MERCK-0603USA02260

PATIENT
  Age: 72 Year
  Sex: Male

DRUGS (2)
  1. VIOXX [Suspect]
     Indication: ARTHRITIS
     Route: 048
     Dates: start: 20010101, end: 20020401
  2. VIOXX [Suspect]
     Route: 048
     Dates: start: 20020401, end: 20030101

REACTIONS (2)
  - ACUTE CORONARY SYNDROME [None]
  - ANGINA UNSTABLE [None]
